FAERS Safety Report 19158881 (Version 1)
Quarter: 2021Q2

REPORT INFORMATION
  Report Type: Spontaneous
  Country: NL (occurrence: SE)
  Receive Date: 20210420
  Receipt Date: 20210420
  Transmission Date: 20210717
  Serious: Yes (Death)
  Sender: FDA-Public Use
  Company Number: SE-FRESENIUS KABI-FK202103925

PATIENT
  Age: 76 Year
  Sex: Male
  Weight: 80 kg

DRUGS (14)
  1. BISOPROLOL FUMARATE. [Concomitant]
     Active Substance: BISOPROLOL FUMARATE
     Indication: PRODUCT USED FOR UNKNOWN INDICATION
     Dosage: BISOPROLOL SANDOZ 2,5 MG FILM COATED TABLET
     Route: 048
     Dates: start: 20200313
  2. DIAZEPAM. [Concomitant]
     Active Substance: DIAZEPAM
     Indication: PRODUCT USED FOR UNKNOWN INDICATION
     Dosage: 1 TABLET AT NIGHT WHEN NEEDED ?STESOLID 5 MG TABLET
     Route: 048
     Dates: start: 20210127
  3. ALLOPURINOL. [Concomitant]
     Active Substance: ALLOPURINOL
     Indication: PRODUCT USED FOR UNKNOWN INDICATION
     Dosage: ALLOPURINOL NORDIC DRUGS 100 MG TABLET
     Route: 048
     Dates: start: 20200506
  4. ESOMEPRAZOLE MAGNESIUM. [Concomitant]
     Active Substance: ESOMEPRAZOLE MAGNESIUM
     Indication: PRODUCT USED FOR UNKNOWN INDICATION
     Dosage: ESOMEPRAZOL KRKA 40 MG GASTRO?RESISTANT CAPSULE, HARD
     Route: 048
     Dates: start: 20200520
  5. ACETYLSALICYLIC ACID [Concomitant]
     Active Substance: ASPIRIN
     Indication: PRODUCT USED FOR UNKNOWN INDICATION
     Dosage: ACETYLSALICYLSYRA TEVA 75 MG TABLET
     Route: 048
     Dates: start: 20200522
  6. SERTRALINE HYDROCHLORIDE. [Concomitant]
     Active Substance: SERTRALINE HYDROCHLORIDE
     Indication: PRODUCT USED FOR UNKNOWN INDICATION
     Dosage: SERTRALIN HEXAL 100 MG FILMCOATED TABLET
     Route: 048
     Dates: start: 20200522
  7. GEMCITABINE. [Suspect]
     Active Substance: GEMCITABINE
     Indication: PRODUCT USED FOR UNKNOWN INDICATION
     Dosage: 1824 MG, 1000 MG/M2
     Route: 042
     Dates: start: 20210310, end: 20210310
  8. INSULIN HUMAN INJECTION, ISOPHANE [Concomitant]
     Active Substance: INSULIN HUMAN
     Indication: PRODUCT USED FOR UNKNOWN INDICATION
     Dosage: 0+28+0+8?INSUMAN BASAL 100 IU/ML SUSPENSION FOR INJECTION IN A PRE?FILLED PEN
     Route: 058
     Dates: start: 20200506
  9. ONDANSETRON HYDROCHLORIDE. [Concomitant]
     Active Substance: ONDANSETRON HYDROCHLORIDE
     Indication: PRODUCT USED FOR UNKNOWN INDICATION
     Dosage: 8 MG 1 IN THE MORNING DAY 1 OF THE CYTOSTATIC TREATMENT?ONDANSETRON AUROBINDO 8 MG FILMCOATED TABLET
     Route: 048
     Dates: start: 20210127
  10. BETAMETHASONE SODIUM PHOSPHATE [Concomitant]
     Active Substance: BETAMETHASONE SODIUM PHOSPHATE
     Indication: PRODUCT USED FOR UNKNOWN INDICATION
     Dosage: 8 TABLETS ON DAY 1 OF THE CYTOSTATIC TREATMENT?BETAMETASON ALTERNOVA 0,5 MG TABLET
     Route: 048
     Dates: start: 20210127
  11. GEMCITABINE. [Suspect]
     Active Substance: GEMCITABINE
     Indication: PANCREATIC CARCINOMA METASTATIC
     Dosage: 1824 MG, 1000 MG/M2
     Route: 042
     Dates: start: 20210303, end: 20210303
  12. GEMCITABINE. [Suspect]
     Active Substance: GEMCITABINE
     Dosage: 1824 MG, 1000 MG/M2
     Route: 042
     Dates: start: 20210203, end: 20210203
  13. ATORVASTATIN CALCIUM. [Concomitant]
     Active Substance: ATORVASTATIN CALCIUM
     Indication: PRODUCT USED FOR UNKNOWN INDICATION
     Dosage: ATORBIR 40 MG FILMCOATED TABLET
     Route: 048
     Dates: start: 20200522
  14. FUROSEMIDE. [Concomitant]
     Active Substance: FUROSEMIDE
     Indication: PRODUCT USED FOR UNKNOWN INDICATION
     Dosage: FURIX 40 MG TABLET
     Route: 048
     Dates: start: 20200522

REACTIONS (1)
  - Thrombocytopenia [Fatal]

NARRATIVE: CASE EVENT DATE: 202103
